FAERS Safety Report 16861163 (Version 1)
Quarter: 2019Q3

REPORT INFORMATION
  Report Type: Spontaneous
  Country: US (occurrence: US)
  Receive Date: 20190927
  Receipt Date: 20190927
  Transmission Date: 20191005
  Serious: Yes (Other)
  Sender: FDA-Public Use
  Company Number: US-ROCHE-2412150

PATIENT
  Sex: Female
  Weight: 48.12 kg

DRUGS (1)
  1. ALECENSA [Suspect]
     Active Substance: ALECTINIB HYDROCHLORIDE
     Indication: LUNG NEOPLASM MALIGNANT
     Dosage: ROUTE AND FREQUENCY- N/A
     Route: 065

REACTIONS (1)
  - Obstructive pancreatitis [Recovering/Resolving]
